FAERS Safety Report 4563084-6 (Version None)
Quarter: 2005Q1

REPORT INFORMATION
  Report Type: 
  Country: None (occurrence: None)
  Receive Date: 20050127
  Receipt Date: 20050114
  Transmission Date: 20050727
  Serious: Yes (Hospitalization, Disabling, Other)
  Sender: FDA-Public Use
  Company Number: NSADSS2003015193

PATIENT
  Sex: Male
  Weight: 70.31 kg

DRUGS (10)
  1. REMICADE [Suspect]
     Route: 041
  2. REMICADE [Suspect]
     Route: 041
  3. REMICADE [Suspect]
     Route: 041
  4. REMICADE [Suspect]
     Dosage: HAS REC'D APPROXIMATELY 4 INFUSIONS.
     Route: 041
  5. PREDNISONE [Concomitant]
  6. ALDACTONE [Concomitant]
  7. ATIVAN [Concomitant]
  8. AMBIEN [Concomitant]
  9. MOTRIN [Concomitant]
     Dosage: AS NEEDED
  10. NAPROXEN [Concomitant]

REACTIONS (9)
  - ANKLE FRACTURE [None]
  - DEMYELINATING POLYNEUROPATHY [None]
  - DIARRHOEA [None]
  - DIARRHOEA HAEMORRHAGIC [None]
  - FALL [None]
  - JOINT SPRAIN [None]
  - PANNICULITIS LOBULAR [None]
  - SYSTEMIC LUPUS ERYTHEMATOSUS [None]
  - WOUND INFECTION STAPHYLOCOCCAL [None]
